FAERS Safety Report 9106330 (Version 1)
Quarter: 2013Q1

REPORT INFORMATION
  Report Type: Spontaneous
  Country: US (occurrence: US)
  Receive Date: 20130221
  Receipt Date: 20130221
  Transmission Date: 20140127
  Serious: Yes (Other)
  Sender: FDA-Public Use
  Company Number: US-PFIZER INC-2013059937

PATIENT
  Sex: 0

DRUGS (1)
  1. TEMSIROLIMUS [Suspect]
     Indication: RENAL CELL CARCINOMA

REACTIONS (3)
  - Focal segmental glomerulosclerosis [Unknown]
  - Proteinuria [Unknown]
  - Oedema [Unknown]
